FAERS Safety Report 10654709 (Version 2)
Quarter: 2014Q4

REPORT INFORMATION
  Report Type: Spontaneous
  Country: US (occurrence: US)
  Receive Date: 20141216
  Receipt Date: 20141217
  Transmission Date: 20150529
  Serious: Yes (Other)
  Sender: FDA-Public Use
  Company Number: US-BAYER-2014-180488

PATIENT
  Age: 70 Year
  Sex: Male

DRUGS (3)
  1. FLAGYL [Concomitant]
     Active Substance: METRONIDAZOLE\METRONIDAZOLE HYDROCHLORIDE
  2. WARFARIN [Concomitant]
     Active Substance: WARFARIN
  3. CIPRO [Suspect]
     Active Substance: CIPROFLOXACIN HYDROCHLORIDE
     Indication: DIVERTICULITIS
     Dosage: 500 MG, BID
     Dates: start: 201411

REACTIONS (9)
  - Tremor [None]
  - Agitation [None]
  - Anger [None]
  - Thrombosis [None]
  - Tremor [None]
  - Asthenia [None]
  - Asthenia [None]
  - Hallucination, visual [None]
  - Arthralgia [None]

NARRATIVE: CASE EVENT DATE: 2014
